FAERS Safety Report 13029141 (Version 2)
Quarter: 2016Q4

REPORT INFORMATION
  Report Type: Report from Study
  Country: US (occurrence: US)
  Receive Date: 20161215
  Receipt Date: 20161226
  Transmission Date: 20170207
  Serious: Yes (Hospitalization)
  Sender: FDA-Public Use
  Company Number: US-ASTRAZENECA-2016SE99587

PATIENT
  Sex: Female

DRUGS (1)
  1. LYNPARZA [Suspect]
     Active Substance: OLAPARIB
     Indication: OVARIAN CANCER
     Route: 048
     Dates: start: 20160906

REACTIONS (5)
  - Nausea [Not Recovered/Not Resolved]
  - Intra-abdominal fluid collection [Unknown]
  - Carbohydrate antigen 125 increased [Unknown]
  - Intestinal obstruction [Unknown]
  - Fatigue [Not Recovered/Not Resolved]
